FAERS Safety Report 7033098-5 (Version None)
Quarter: 2010Q4

REPORT INFORMATION
  Report Type: 
  Country: None (occurrence: None)
  Receive Date: 20101004
  Receipt Date: 20100920
  Transmission Date: 20110411
  Serious: Yes (Hospitalization)
  Sender: FDA-Public Use
  Company Number: 2010MA002882

PATIENT
  Age: 45 Year
  Sex: Female

DRUGS (7)
  1. FLUOXETINE [Suspect]
  2. SERTRALINE HYDROCHLORIDE [Suspect]
     Dosage: 50 MG;QD
  3. TRAZODONE (TRAZODONE) [Suspect]
     Dosage: 100 MG;QD
  4. VENLFAXINE (VENLAFAXINE) [Suspect]
     Dosage: 37.5 MG;QD
  5. NSAID'S (NSAID'S) [Suspect]
     Indication: TOOTH ABSCESS
  6. AMOXOCILLIN [Concomitant]
  7. PREV MEDS [Concomitant]

REACTIONS (4)
  - CYANOSIS [None]
  - GINGIVAL BLEEDING [None]
  - THROMBOCYTOPENIA [None]
  - TOOTH ABSCESS [None]
